FAERS Safety Report 10862037 (Version 7)
Quarter: 2015Q2

REPORT INFORMATION
  Report Type: Spontaneous
  Country: HU (occurrence: HU)
  Receive Date: 20150224
  Receipt Date: 20150605
  Transmission Date: 20150821
  Serious: Yes (Death, Hospitalization)
  Sender: FDA-Public Use
  Company Number: HU-PFIZER INC-2015049661

PATIENT
  Age: 55 Year
  Sex: Female

DRUGS (6)
  1. SUTENT [Suspect]
     Active Substance: SUNITINIB MALATE
     Indication: RENAL CANCER METASTATIC
     Dosage: 50 MG, CYCLIC, DAILY
     Route: 048
     Dates: start: 20141211
  2. SUTENT [Suspect]
     Active Substance: SUNITINIB MALATE
     Dosage: 3RD CYCLE 50 MG, CYCLIC, DAILY
     Route: 048
     Dates: start: 20150305, end: 20150401
  3. COVEREX [Concomitant]
     Indication: HYPERTENSION
     Dosage: UNK
  4. INSULIN [Concomitant]
     Active Substance: INSULIN NOS
     Indication: DIABETES MELLITUS
     Dosage: FOR APPROX. ONE YEAR
  5. BETALOC [Concomitant]
     Active Substance: METOPROLOL TARTRATE
     Indication: HYPERTENSION
     Dosage: UNK
  6. SUTENT [Suspect]
     Active Substance: SUNITINIB MALATE
     Dosage: 2ND CYCLE 50 MG, CYCLIC, DAILY
     Route: 048
     Dates: start: 20150121, end: 20150218

REACTIONS (11)
  - Vomiting [Not Recovered/Not Resolved]
  - Ascites [Recovered/Resolved]
  - Nausea [Not Recovered/Not Resolved]
  - Ascites [Recovered/Resolved]
  - Nausea [Recovered/Resolved]
  - Vomiting [Recovered/Resolved]
  - Peripheral swelling [Recovering/Resolving]
  - Death [Fatal]
  - Nausea [Recovered/Resolved]
  - Vomiting [Recovered/Resolved]
  - Diarrhoea [Recovered/Resolved]

NARRATIVE: CASE EVENT DATE: 20150130
